FAERS Safety Report 9496847 (Version 1)
Quarter: 2013Q3

REPORT INFORMATION
  Report Type: Spontaneous
  Country: FI (occurrence: FI)
  Receive Date: 20130904
  Receipt Date: 20130904
  Transmission Date: 20140515
  Serious: Yes (Other)
  Sender: FDA-Public Use
  Company Number: FI-PFIZER INC-2013250173

PATIENT
  Age: 6 Decade
  Sex: Female

DRUGS (1)
  1. PROVERA [Suspect]
     Dosage: UNK
     Dates: end: 2013

REACTIONS (13)
  - Mucosal membrane hyperplasia [Unknown]
  - Varicose vein [Unknown]
  - Breast disorder [Unknown]
  - Eye pain [Not Recovered/Not Resolved]
  - Visual acuity reduced [Not Recovered/Not Resolved]
  - Micturition urgency [Not Recovered/Not Resolved]
  - Headache [Unknown]
  - Nausea [Unknown]
  - Night sweats [Unknown]
  - Genital pain [Unknown]
  - Vaginal disorder [Unknown]
  - Nodule [Unknown]
  - Pain in extremity [Unknown]
